FAERS Safety Report 5168906-6 (Version None)
Quarter: 2006Q4

REPORT INFORMATION
  Report Type: 
  Country: None (occurrence: None)
  Receive Date: 20061211
  Receipt Date: 20061128
  Transmission Date: 20070319
  Serious: Yes (Other)
  Sender: FDA-Public Use
  Company Number: PHBS2006TR18647

PATIENT
  Age: 62 Year
  Sex: Female

DRUGS (2)
  1. LUDIOMIL [Suspect]
     Dosage: 75 MG, BID
  2. HERBAL PREPARATION [Concomitant]

REACTIONS (6)
  - CORONARY ARTERIAL STENT INSERTION [None]
  - CORONARY ARTERY STENOSIS [None]
  - DEPRESSION [None]
  - LIVER DISORDER [None]
  - RESTLESSNESS [None]
  - WEIGHT INCREASED [None]
